FAERS Safety Report 7894590-4 (Version None)
Quarter: 2011Q4

REPORT INFORMATION
  Report Type: 
  Country: None (occurrence: None)
  Receive Date: 20111106
  Receipt Date: 20110817
  Transmission Date: 20120403
  Serious: Yes (Other)
  Sender: FDA-Public Use
  Company Number: US-AMGEN-USASP2011041947

PATIENT
  Age: 46 Year
  Sex: Female

DRUGS (1)
  1. ENBREL [Suspect]
     Indication: RHEUMATOID ARTHRITIS
     Dosage: 50 MG, QWK
     Dates: start: 20110501

REACTIONS (7)
  - INJECTION SITE PAIN [None]
  - VITAMIN B12 DECREASED [None]
  - RASH ERYTHEMATOUS [None]
  - ANAEMIA [None]
  - INJECTION SITE HAEMATOMA [None]
  - INCREASED TENDENCY TO BRUISE [None]
  - RASH PRURITIC [None]
